FAERS Safety Report 6749117-7 (Version None)
Quarter: 2010Q2

REPORT INFORMATION
  Report Type: 
  Country: None (occurrence: None)
  Receive Date: 20100601
  Receipt Date: 20100527
  Transmission Date: 20101027
  Serious: Yes (Other)
  Sender: FDA-Public Use
  Company Number: US-BRISTOL-MYERS SQUIBB COMPANY-15123938

PATIENT
  Sex: Male

DRUGS (2)
  1. ABILIFY [Suspect]
     Dosage: REDUCED TO 1MG
  2. ANTIDEPRESSANT [Concomitant]

REACTIONS (1)
  - WITHDRAWAL SYNDROME [None]
